FAERS Safety Report 6768819-X (Version None)
Quarter: 2010Q2

REPORT INFORMATION
  Report Type: 
  Country: None (occurrence: None)
  Receive Date: 20100611
  Receipt Date: 20100531
  Transmission Date: 20101027
  Serious: Yes (Other)
  Sender: FDA-Public Use
  Company Number: 1000014403

PATIENT
  Age: 81 Year
  Sex: Male

DRUGS (8)
  1. CITALOPRAM HYDROBROMIDE [Suspect]
     Dates: end: 20080310
  2. HEPARINE BIOSEDRA [Suspect]
     Dates: end: 20100309
  3. MOPRAL [Suspect]
  4. PERFALGAN [Suspect]
  5. IMIPENEM AND CILASTATIN [Suspect]
  6. TARGOCID [Suspect]
  7. KARDEGIC [Suspect]
  8. TENORMIN [Suspect]

REACTIONS (2)
  - DEEP VEIN THROMBOSIS [None]
  - THROMBOCYTOPENIA [None]
